FAERS Safety Report 14119817 (Version 1)
Quarter: 2017Q4

REPORT INFORMATION
  Report Type: Spontaneous
  Country: US (occurrence: US)
  Receive Date: 20171024
  Receipt Date: 20171024
  Transmission Date: 20180321
  Serious: Yes (Other)
  Sender: FDA-Public Use
  Company Number: None

PATIENT
  Age: 55 Year
  Sex: Male
  Weight: 73.35 kg

DRUGS (2)
  1. OXALIPLATIN. [Concomitant]
     Active Substance: OXALIPLATIN
  2. HERCEPTIN [Suspect]
     Active Substance: TRASTUZUMAB
     Indication: GASTRIC CANCER
     Dosage: ?          OTHER FREQUENCY:Q 3 WEEKS;?
     Route: 042
     Dates: start: 20170328, end: 20171012

REACTIONS (3)
  - Urticaria [None]
  - Pruritus [None]
  - Erythema [None]

NARRATIVE: CASE EVENT DATE: 20171012
